FAERS Safety Report 6405139 (Version 2)
Quarter: 2015Q1

REPORT INFORMATION
  Report Type: Report from Study
  Country: US (occurrence: US)
  Receive Date: 20070904
  Receipt Date: 20150115
  Transmission Date: 20150721
  Serious: Yes (Hospitalization)
  Sender: FDA-Public Use
  Company Number: US-ROCHE-512509

PATIENT
  Age: 59 Year
  Sex: Female
  Weight: 115.2 kg

DRUGS (10)
  1. LEVOTHYROX [Concomitant]
     Active Substance: LEVOTHYROXINE
     Route: 065
  2. CAPECITABINE. [Suspect]
     Active Substance: CAPECITABINE
     Indication: BREAST CANCER METASTATIC
     Dosage: FREQUENCY REPORTED AS D1-14/Q3W.
     Route: 048
  3. LUNESTA [Concomitant]
     Active Substance: ESZOPICLONE
     Route: 065
  4. HYDROCHLOROTHIAZIDE. [Concomitant]
     Active Substance: HYDROCHLOROTHIAZIDE
     Route: 065
  5. AMLODIPINE [Concomitant]
     Active Substance: AMLODIPINE BESYLATE
     Route: 065
  6. DEXTROL [Concomitant]
     Route: 065
  7. OXYCODONE [Concomitant]
     Active Substance: OXYCODONE
     Route: 065
  8. POTASSIUM CHLORIDE. [Concomitant]
     Active Substance: POTASSIUM CHLORIDE
     Route: 065
  9. LIPITOR [Concomitant]
     Active Substance: ATORVASTATIN CALCIUM
     Route: 065
  10. PLACEBO [Suspect]
     Active Substance: UNSPECIFIED INGREDIENT
     Indication: BREAST CANCER METASTATIC
     Dosage: FORM: POWDER AND SOLVENT FOR SOLUTION FOR INFUSION.
     Route: 042
     Dates: start: 20070422

REACTIONS (1)
  - Muscle twitching [Recovered/Resolved]

NARRATIVE: CASE EVENT DATE: 20070724
